FAERS Safety Report 11537477 (Version 1)
Quarter: 2015Q3

REPORT INFORMATION
  Report Type: Spontaneous
  Country: US (occurrence: US)
  Receive Date: 20150922
  Receipt Date: 20150922
  Transmission Date: 20151125
  Serious: Yes (Other)
  Sender: FDA-Public Use
  Company Number: US-PFIZER INC-2015311811

PATIENT
  Sex: Female

DRUGS (1)
  1. DETROL LA [Suspect]
     Active Substance: TOLTERODINE TARTRATE
     Indication: BLADDER SPASM
     Dosage: 4 MG, 1X/DAY, IN THE MORNING

REACTIONS (4)
  - Dizziness [Unknown]
  - Emotional distress [Unknown]
  - Anxiety [Unknown]
  - Drug dose omission [Unknown]
